FAERS Safety Report 15492078 (Version 1)
Quarter: 2018Q4

REPORT INFORMATION
  Report Type: Spontaneous
  Country: US (occurrence: US)
  Receive Date: 20181011
  Receipt Date: 20181011
  Transmission Date: 20190205
  Serious: No
  Sender: FDA-Public Use
  Company Number: None

PATIENT
  Age: 57 Year
  Sex: Female
  Weight: 101 kg

DRUGS (2)
  1. HEPARIN SODIUM INJECTION [Suspect]
     Active Substance: HEPARIN SODIUM
     Indication: EMBOLISM VENOUS
     Route: 058
     Dates: start: 20181008, end: 20181011
  2. HEPARIN 50,000 UNITS/ 10 ML [Concomitant]
     Dates: start: 20180928, end: 20180929

REACTIONS (2)
  - Activated partial thromboplastin time prolonged [None]
  - Therapy change [None]

NARRATIVE: CASE EVENT DATE: 20181011
